FAERS Safety Report 16903030 (Version 1)
Quarter: 2019Q4

REPORT INFORMATION
  Report Type: Spontaneous
  Country: CA (occurrence: CA)
  Receive Date: 20191010
  Receipt Date: 20191010
  Transmission Date: 20200122
  Serious: Yes (Hospitalization)
  Sender: FDA-Public Use
  Company Number: CA-ROCHE-2429265

PATIENT
  Age: 36 Year
  Sex: Female

DRUGS (24)
  1. RIBAVIRIN. [Interacting]
     Active Substance: RIBAVIRIN
     Indication: PRODUCT USED FOR UNKNOWN INDICATION
     Route: 065
  2. RIBAVIRIN. [Interacting]
     Active Substance: RIBAVIRIN
     Indication: HEPATITIS C
     Route: 065
  3. RIBAVIRIN. [Interacting]
     Active Substance: RIBAVIRIN
     Indication: CHRONIC HEPATITIS C
     Route: 065
  4. PROGRAF [Interacting]
     Active Substance: TACROLIMUS
     Indication: LIVER TRANSPLANT
     Route: 065
  5. PROGRAF [Interacting]
     Active Substance: TACROLIMUS
     Indication: IMMUNOSUPPRESSION
     Route: 065
  6. BOCEPREVIR [Interacting]
     Active Substance: BOCEPREVIR
     Indication: HEPATITIS C
     Route: 065
  7. PEGINTERFERON ALFA-2B;RIBAVIRIN [Interacting]
     Active Substance: PEGINTERFERON ALFA-2B\RIBAVIRIN
     Indication: PRODUCT USED FOR UNKNOWN INDICATION
     Route: 065
  8. INTRON A [Interacting]
     Active Substance: INTERFERON ALFA-2B
     Indication: HEPATITIS C
     Route: 065
  9. INTRON A [Interacting]
     Active Substance: INTERFERON ALFA-2B
     Route: 065
  10. PROGRAF [Interacting]
     Active Substance: TACROLIMUS
     Indication: PRODUCT USED FOR UNKNOWN INDICATION
     Route: 065
  11. PEGINTERFERON ALFA-2B [Interacting]
     Active Substance: PEGINTERFERON ALFA-2B
     Indication: HEPATITIS C
     Route: 065
  12. WARFARIN [Concomitant]
     Active Substance: WARFARIN
     Indication: SHUNT THROMBOSIS
     Route: 065
  13. MYCOPHENOLATE MOFETIL. [Suspect]
     Active Substance: MYCOPHENOLATE MOFETIL
     Indication: LIVER TRANSPLANT
     Route: 065
  14. RIBAVIRIN. [Interacting]
     Active Substance: RIBAVIRIN
     Route: 065
  15. PEGINTERFERON ALFA-2B [Interacting]
     Active Substance: PEGINTERFERON ALFA-2B
     Indication: PRODUCT USED FOR UNKNOWN INDICATION
     Route: 065
  16. INTRON A [Interacting]
     Active Substance: INTERFERON ALFA-2B
     Route: 065
  17. INTRON A [Interacting]
     Active Substance: INTERFERON ALFA-2B
     Indication: PRODUCT USED FOR UNKNOWN INDICATION
     Route: 065
  18. MYCOPHENOLATE MOFETIL. [Interacting]
     Active Substance: MYCOPHENOLATE MOFETIL
     Indication: IMMUNOSUPPRESSION
     Route: 065
  19. PEGASYS [Interacting]
     Active Substance: PEGINTERFERON ALFA-2A
     Route: 065
  20. PEGASYS [Interacting]
     Active Substance: PEGINTERFERON ALFA-2A
     Route: 065
  21. PEGINTERFERON ALFA-2B;RIBAVIRIN [Interacting]
     Active Substance: PEGINTERFERON ALFA-2B\RIBAVIRIN
     Indication: CHRONIC HEPATITIS C
     Route: 065
  22. BOCEPREVIR [Interacting]
     Active Substance: BOCEPREVIR
     Indication: HEPATITIS CHOLESTATIC
     Route: 065
  23. BOCEPREVIR;PEGINTERFERON ALFA-2B;RIBAVIRIN [Interacting]
     Active Substance: BOCEPREVIR\PEGINTERFERON ALFA-2B\RIBAVIRIN
     Indication: PRODUCT USED FOR UNKNOWN INDICATION
     Route: 065
  24. PEGASYS [Interacting]
     Active Substance: PEGINTERFERON ALFA-2A
     Indication: PRODUCT USED FOR UNKNOWN INDICATION
     Route: 058

REACTIONS (13)
  - Hepatic function abnormal [Recovering/Resolving]
  - Liver transplant [Recovering/Resolving]
  - Renal impairment [Recovering/Resolving]
  - Ascites [Recovering/Resolving]
  - Jaundice [Recovering/Resolving]
  - Neutropenia [Recovering/Resolving]
  - Anaemia [Recovering/Resolving]
  - Hepatic enzyme increased [Recovering/Resolving]
  - Hepatitis C [Recovering/Resolving]
  - Drug ineffective [Unknown]
  - Drug level increased [Recovering/Resolving]
  - Hepatitis cholestatic [Recovering/Resolving]
  - Drug interaction [Unknown]
